FAERS Safety Report 5491367-4 (Version None)
Quarter: 2007Q4

REPORT INFORMATION
  Report Type: 
  Country: None (occurrence: None)
  Receive Date: 20071017
  Receipt Date: 20071003
  Transmission Date: 20080405
  Serious: Yes (Hospitalization, Other)
  Sender: FDA-Public Use
  Company Number: 100#03#2007-03964

PATIENT
  Age: 41 Year
  Sex: Male

DRUGS (5)
  1. TRAMADOL HCL [Suspect]
     Indication: PAIN
     Dosage: 100MG ORAL
     Route: 048
     Dates: start: 20060508
  2. NARATRIPTAN [Suspect]
     Indication: MIGRAINE
     Dosage: 2.5MG (1/1 TOTAL) ORAL
     Route: 048
     Dates: start: 20070723, end: 20070723
  3. CYCLIZINE [Concomitant]
  4. ETORICOXIB [Concomitant]
  5. LANSOPRAZOLE [Concomitant]

REACTIONS (4)
  - DRUG INTERACTION [None]
  - DYSPHASIA [None]
  - HYPERVENTILATION [None]
  - PARALYSIS [None]
